FAERS Safety Report 26200053 (Version 1)
Quarter: 2025Q4

REPORT INFORMATION
  Report Type: Spontaneous
  Country: US (occurrence: US)
  Receive Date: 20251225
  Receipt Date: 20251225
  Transmission Date: 20260118
  Serious: No
  Sender: UROGEN PHARMA
  Company Number: US-UROGEN PHARMA LTD.-2025-UGN-000216

PATIENT

DRUGS (3)
  1. ZUSDURI [Suspect]
     Active Substance: MITOMYCIN
     Indication: Bladder transitional cell carcinoma
     Dosage: 56 MILLILITER, ONCE A WEEK (INSTILLATION)
     Route: 043
     Dates: start: 20251017, end: 20251017
  2. ZUSDURI [Suspect]
     Active Substance: MITOMYCIN
     Dosage: 56 MILLILITER, ONCE A WEEK (INSTILLATION)
     Route: 043
     Dates: start: 20251024, end: 20251024
  3. ZUSDURI [Suspect]
     Active Substance: MITOMYCIN
     Dosage: 56 MILLILITER, ONCE A WEEK (INSTILLATION)
     Route: 043
     Dates: start: 20251031, end: 20251031

REACTIONS (1)
  - Urine abnormality [Recovered/Resolved]

NARRATIVE: CASE EVENT DATE: 20251024
